FAERS Safety Report 22184563 (Version 3)
Quarter: 2023Q2

REPORT INFORMATION
  Report Type: Other
  Country: CN (occurrence: None)
  Receive Date: 20230407
  Receipt Date: 20230627
  Transmission Date: 20230721
  Serious: Yes (Other)
  Sender: FDA-Public Use
  Company Number: CN-ROCHE-3074550

PATIENT
  Age: 70 Year
  Sex: Female
  Weight: 51 kg

DRUGS (1)
  1. AVASTIN [Suspect]
     Active Substance: BEVACIZUMAB
     Indication: Non-small cell lung cancer
     Route: 041
     Dates: start: 20151125, end: 20230302

REACTIONS (4)
  - Orthopaedic procedure [Unknown]
  - Pulmonary mass [Not Recovered/Not Resolved]
  - SARS-CoV-2 test positive [Unknown]
  - Limb injury [Unknown]

NARRATIVE: CASE EVENT DATE: 20220221
